FAERS Safety Report 5489856-1 (Version None)
Quarter: 2007Q4

REPORT INFORMATION
  Report Type: 
  Country: None (occurrence: None)
  Receive Date: 20071017
  Receipt Date: 20071017
  Transmission Date: 20080405
  Serious: No
  Sender: FDA-Public Use
  Company Number: None

PATIENT
  Age: 27 Year
  Sex: Male

DRUGS (2)
  1. SALSALATE [Suspect]
     Dosage: 750MG BID
     Dates: start: 20060828, end: 20060907
  2. BACTRIM [Concomitant]

REACTIONS (1)
  - HEPATOCELLULAR DAMAGE [None]
